FAERS Safety Report 16292404 (Version 3)
Quarter: 2022Q4

REPORT INFORMATION
  Report Type: Spontaneous
  Country: US (occurrence: None)
  Receive Date: 20190509
  Receipt Date: 20221220
  Transmission Date: 20230112
  Serious: Yes (Death, Other)
  Sender: FDA-Public Use
  Company Number: 2019SE66909

PATIENT
  Age: 18090 Day
  Sex: Female

DRUGS (89)
  1. NEXIUM [Suspect]
     Active Substance: ESOMEPRAZOLE MAGNESIUM
     Indication: Gastrooesophageal reflux disease
     Route: 048
     Dates: start: 200601, end: 201512
  2. PRILOSEC [Suspect]
     Active Substance: OMEPRAZOLE MAGNESIUM
     Indication: Gastrooesophageal reflux disease
     Route: 048
     Dates: start: 200601, end: 201512
  3. PRILOSEC [Suspect]
     Active Substance: OMEPRAZOLE MAGNESIUM
     Indication: Gastrooesophageal reflux disease
     Dosage: GENERIC
     Route: 065
     Dates: start: 2012
  4. PRILOSEC OTC [Suspect]
     Active Substance: OMEPRAZOLE MAGNESIUM
     Indication: Gastrooesophageal reflux disease
     Route: 048
     Dates: start: 200601, end: 201512
  5. PREVACID [Suspect]
     Active Substance: LANSOPRAZOLE
     Indication: Gastrooesophageal reflux disease
     Route: 065
     Dates: start: 200601, end: 201512
  6. PREVACID [Suspect]
     Active Substance: LANSOPRAZOLE
     Indication: Gastrooesophageal reflux disease
     Dosage: GENERIC
     Route: 065
  7. PROTONIX [Suspect]
     Active Substance: PANTOPRAZOLE SODIUM
     Indication: Gastrooesophageal reflux disease
     Route: 065
  8. PROTONIX [Suspect]
     Active Substance: PANTOPRAZOLE SODIUM
     Indication: Gastrooesophageal reflux disease
     Dosage: GENERIC
     Route: 065
     Dates: start: 2014
  9. ATORVASTATIN [Concomitant]
     Active Substance: ATORVASTATIN
     Indication: Blood cholesterol increased
  10. FUROSEMIDE [Concomitant]
     Active Substance: FUROSEMIDE
     Indication: Oedema
  11. HUMALOG [Concomitant]
     Active Substance: INSULIN LISPRO
  12. ISOSORBIDE MONONITRATE [Concomitant]
     Active Substance: ISOSORBIDE MONONITRATE
  13. LANTUS [Concomitant]
     Active Substance: INSULIN GLARGINE
  14. AMLODIPINE BESYLATE [Concomitant]
     Active Substance: AMLODIPINE BESYLATE
  15. RENAGEL [Concomitant]
     Active Substance: SEVELAMER HYDROCHLORIDE
  16. BYDUREON [Concomitant]
     Active Substance: EXENATIDE
  17. LIDOCAINE [Concomitant]
     Active Substance: LIDOCAINE
  18. PREDNISOLONE [Concomitant]
     Active Substance: PREDNISOLONE
  19. GABAPENTIN [Concomitant]
     Active Substance: GABAPENTIN
  20. CARVEDILOL [Concomitant]
     Active Substance: CARVEDILOL
  21. AMMONIUM LACTATE [Concomitant]
     Active Substance: AMMONIUM LACTATE
  22. LEVETIRACETAMINE [Concomitant]
  23. FOLIC ACID [Concomitant]
     Active Substance: FOLIC ACID
  24. ATROPINE SULFATE [Concomitant]
     Active Substance: ATROPINE SULFATE
  25. HYDRALAZINE HYDROCHLORIDE [Concomitant]
     Active Substance: HYDRALAZINE HYDROCHLORIDE
  26. ALLOPURINOL [Concomitant]
     Active Substance: ALLOPURINOL
  27. FERROUS SULFATE [Concomitant]
     Active Substance: FERROUS SULFATE
  28. METFORMIN HYDROCHLORIDE [Concomitant]
     Active Substance: METFORMIN HYDROCHLORIDE
  29. GLIPIZIDE [Concomitant]
     Active Substance: GLIPIZIDE
  30. ENBREL [Concomitant]
     Active Substance: ETANERCEPT
  31. METHOTREXATE [Concomitant]
     Active Substance: METHOTREXATE
  32. VYTORIN [Concomitant]
     Active Substance: EZETIMIBE\SIMVASTATIN
  33. BIDIL [Concomitant]
     Active Substance: HYDRALAZINE HYDROCHLORIDE\ISOSORBIDE DINITRATE
  34. FENTANYL [Concomitant]
     Active Substance: FENTANYL
  35. ALBUTEROL SULFATE [Concomitant]
     Active Substance: ALBUTEROL SULFATE
  36. VITAMIN D [Concomitant]
     Active Substance: VITAMIN D NOS
  37. EQUATE [Concomitant]
  38. ZANTAC [Concomitant]
     Active Substance: RANITIDINE HYDROCHLORIDE
  39. OXYCODONE [Concomitant]
     Active Substance: OXYCODONE
  40. TRIAMTERENE [Concomitant]
     Active Substance: TRIAMTERENE
  41. ZOSTAVAX [Concomitant]
     Active Substance: VARICELLA-ZOSTER VIRUS STRAIN OKA/MERCK LIVE ANTIGEN
  42. PREVNAR [Concomitant]
     Active Substance: PNEUMOCOCCAL 7-VALENT CONJUGATE VACCINE (DIPHTHERIA CRM197 PROTEIN)
  43. TETANUS ANTITOXIN [Concomitant]
     Active Substance: TETANUS ANTITOXIN
  44. OXYCODONE HYDROCHLORIDE [Concomitant]
     Active Substance: OXYCODONE HYDROCHLORIDE
  45. DEXTROSE [Concomitant]
     Active Substance: DEXTROSE
  46. SUCRALFATE [Concomitant]
     Active Substance: SUCRALFATE
  47. CARDURA [Concomitant]
     Active Substance: DOXAZOSIN MESYLATE
  48. LEVAQUIN [Concomitant]
     Active Substance: LEVOFLOXACIN
  49. DICLOXACILLIN [Concomitant]
     Active Substance: DICLOXACILLIN
  50. ACETYLSALICYLIC ACID/OXYCODONE [Concomitant]
  51. TOPROL XL [Concomitant]
     Active Substance: METOPROLOL SUCCINATE
  52. LISINOPRIL/AMLODIPINE/HYDROCHLOROTHIAZIDE [Concomitant]
  53. BUTRANS [Concomitant]
     Active Substance: BUPRENORPHINE
  54. ADVIL [Concomitant]
     Active Substance: IBUPROFEN
  55. PRAVASTATIN SODIUM [Concomitant]
     Active Substance: PRAVASTATIN SODIUM
  56. TIZANIDINE HYDROCHLORIDE [Concomitant]
     Active Substance: TIZANIDINE HYDROCHLORIDE
  57. RABEPRAZOLE [Concomitant]
     Active Substance: RABEPRAZOLE
  58. ENEMA (SODIUM PHOSPHATE, DIBASIC\SODIUM PHOSPHATE, MONOBASIC) [Concomitant]
     Active Substance: SODIUM PHOSPHATE, DIBASIC\SODIUM PHOSPHATE, MONOBASIC
  59. CITRATE OF MAGNESIUM [Concomitant]
     Active Substance: MAGNESIUM CITRATE
  60. MAGNESIUM OXIDE [Concomitant]
     Active Substance: MAGNESIUM OXIDE
  61. POTASSIUM CHLORIDE [Concomitant]
     Active Substance: POTASSIUM CHLORIDE
  62. HYDROCHLOROTHIAZIDE [Concomitant]
     Active Substance: HYDROCHLOROTHIAZIDE
  63. BENZOCAINE [Concomitant]
     Active Substance: BENZOCAINE
  64. CALCIUM CITRATE [Concomitant]
     Active Substance: CALCIUM CITRATE
  65. SENNA [Concomitant]
     Active Substance: SENNA LEAF\SENNOSIDES\SENNOSIDES A AND B
  66. DOCUSATE SODIUM [Concomitant]
     Active Substance: DOCUSATE SODIUM
  67. POLYETHYLENE GLYCOL [Concomitant]
     Active Substance: POLYETHYLENE GLYCOL
  68. FLOXIN [Concomitant]
     Active Substance: OFLOXACIN
  69. FLONASE [Concomitant]
     Active Substance: FLUTICASONE PROPIONATE
  70. POLYVIDONE [Concomitant]
  71. IODINE [Concomitant]
     Active Substance: IODINE
  72. VASOPRESSIN [Concomitant]
     Active Substance: VASOPRESSIN
  73. ERYTHROMYCIN [Concomitant]
     Active Substance: ERYTHROMYCIN
  74. LACTATED RINGERS SOLUTION [Concomitant]
     Active Substance: CALCIUM CHLORIDE\POTASSIUM CHLORIDE\SODIUM CHLORIDE\SODIUM LACTATE
  75. SCOPOLAMINE [Concomitant]
     Active Substance: SCOPOLAMINE
  76. MIDAZOLAM [Concomitant]
     Active Substance: MIDAZOLAM
  77. HYDROCORTISONE SODIUM SUCCINATE [Concomitant]
     Active Substance: HYDROCORTISONE SODIUM SUCCINATE
  78. METHYLPREDNISOLONE SODIUM SUCCINATE [Concomitant]
     Active Substance: METHYLPREDNISOLONE SODIUM SUCCINATE
  79. PREDNISONE [Concomitant]
     Active Substance: PREDNISONE
  80. DECADRON [Concomitant]
     Active Substance: DEXAMETHASONE
  81. EPINEPHRINE [Concomitant]
     Active Substance: EPINEPHRINE
  82. PROPOFOL [Concomitant]
     Active Substance: PROPOFOL
  83. CEFAZOLIN [Concomitant]
     Active Substance: CEFAZOLIN
  84. ROCURONIUM [Concomitant]
     Active Substance: ROCURONIUM BROMIDE
  85. EPOGEN [Concomitant]
     Active Substance: ERYTHROPOIETIN
  86. ZEMPLAR [Concomitant]
     Active Substance: PARICALCITOL
  87. HEPARIN [Concomitant]
     Active Substance: HEPARIN SODIUM
  88. RECOMBIVAX [Concomitant]
  89. QUINIDINE [Concomitant]
     Active Substance: QUINIDINE

REACTIONS (10)
  - Cardio-respiratory arrest [Fatal]
  - Septic shock [Fatal]
  - Chronic kidney disease [Not Recovered/Not Resolved]
  - End stage renal disease [Not Recovered/Not Resolved]
  - Acute kidney injury [Unknown]
  - Chronic kidney disease-mineral and bone disorder [Unknown]
  - Nephrogenic anaemia [Unknown]
  - Renal failure [Unknown]
  - Azotaemia [Unknown]
  - Hyperparathyroidism secondary [Unknown]

NARRATIVE: CASE EVENT DATE: 20070904
